FAERS Safety Report 5542617-7 (Version None)
Quarter: 2007Q4

REPORT INFORMATION
  Report Type: 
  Country: None (occurrence: None)
  Receive Date: 20071210
  Receipt Date: 20071204
  Transmission Date: 20080405
  Serious: Yes (Hospitalization)
  Sender: FDA-Public Use
  Company Number: US-GENENTECH-247210

PATIENT
  Age: 72 Year
  Sex: Male

DRUGS (9)
  1. BEVACIZUMAB [Suspect]
     Indication: DRUG USE FOR UNKNOWN INDICATION
     Route: 042
     Dates: start: 20070716
  2. BEVACIZUMAB [Suspect]
     Dosage: 280 MG/M2, 1 IN 2 WKS
     Route: 042
     Dates: start: 20070730
  3. OXALIPLATIN [Suspect]
     Indication: DRUG USE FOR UNKNOWN INDICATION
     Dosage: UNK, UNK
     Route: 042
     Dates: start: 20070716
  4. OXALIPLATIN [Suspect]
     Dosage: 140 MG/M2, 1 IN 2 WKS
     Route: 042
     Dates: start: 20070730
  5. TS-1 [Suspect]
     Indication: DRUG USE FOR UNKNOWN INDICATION
     Dosage: UNK, UNK
     Route: 048
     Dates: start: 20070716, end: 20070805
  6. TS-1 [Suspect]
     Dosage: 60 MG, UNK
     Route: 048
     Dates: start: 20070730
  7. SIMETHICONE [Concomitant]
     Indication: DRUG USE FOR UNKNOWN INDICATION
  8. MS CONTIN [Concomitant]
     Indication: DRUG USE FOR UNKNOWN INDICATION
  9. DARBEPOETIN ALFA [Concomitant]
     Indication: DRUG USE FOR UNKNOWN INDICATION

REACTIONS (3)
  - PLEURAL EFFUSION [None]
  - PNEUMONIA [None]
  - PNEUMOPERICARDIUM [None]
